FAERS Safety Report 9158297 (Version 1)
Quarter: 2013Q1

REPORT INFORMATION
  Report Type: Spontaneous
  Country: US (occurrence: None)
  Receive Date: 20130211
  Receipt Date: 20130211
  Transmission Date: 20140127
  Serious: Yes (Other)
  Sender: FDA-Public Use
  Company Number: 2013-01835

PATIENT
  Sex: Female

DRUGS (3)
  1. CHLORPROMAZINE HYDROCHLORIDE [Suspect]
     Indication: PRODUCT USED FOR UNKNOWN INDICATION
  2. CHLORPROMAZINE HYDROCHLORIDE [Suspect]
  3. CARBAMAZEPINE (CARBAMAZEPINE) CHEWABLE TABLET [Suspect]
     Indication: PRODUCT USED FOR UNKNOWN INDICATION

REACTIONS (17)
  - Anger [None]
  - Condition aggravated [None]
  - Catatonia [None]
  - Cognitive disorder [None]
  - Intentional self-injury [None]
  - Delusion [None]
  - Mydriasis [None]
  - Urinary incontinence [None]
  - Dyspraxia [None]
  - Dystonia [None]
  - Inappropriate affect [None]
  - Insomnia [None]
  - Mutism [None]
  - Convulsion [None]
  - Dysphagia [None]
  - Tachycardia [None]
  - Autonomic neuropathy [None]
